FAERS Safety Report 8854611 (Version 2)
Quarter: 2012Q4

REPORT INFORMATION
  Report Type: 
  Country: CN (occurrence: CN)
  Receive Date: 20121023
  Receipt Date: 20121025
  Transmission Date: 20130627
  Serious: Yes (Death)
  Sender: FDA-Public Use
  Company Number: CN-PFIZER INC-2012261398

PATIENT
  Sex: Female

DRUGS (1)
  1. ZAVEDOS [Suspect]
     Indication: LEUKAEMIA RECURRENT
     Dosage: UNK
     Route: 041

REACTIONS (1)
  - Haemorrhage intracranial [Fatal]
